FAERS Safety Report 9695780 (Version 3)
Quarter: 2016Q3

REPORT INFORMATION
  Report Type: Spontaneous
  Country: DK (occurrence: JP)
  Receive Date: 20131119
  Receipt Date: 20160705
  Transmission Date: 20161109
  Serious: Yes (Disabling, Other)
  Sender: FDA-Public Use
  Company Number: JP-FRI-1000051453

PATIENT
  Age: 29 Year
  Sex: Male
  Weight: 80 kg

DRUGS (4)
  1. LEXAPRO [Suspect]
     Active Substance: ESCITALOPRAM OXALATE
     Route: 048
     Dates: start: 20130923
  2. ALLEGRA [Concomitant]
     Active Substance: FEXOFENADINE HYDROCHLORIDE
     Dosage: 60 G
     Route: 048
  3. MEILAX [Concomitant]
     Active Substance: ETHYL LOFLAZEPATE
     Route: 048
  4. LEXAPRO [Suspect]
     Active Substance: ESCITALOPRAM OXALATE
     Indication: HYPERHIDROSIS
     Route: 048
     Dates: start: 20120726

REACTIONS (8)
  - Suicide attempt [Unknown]
  - Depressed level of consciousness [Recovered/Resolved]
  - Off label use [Unknown]
  - Pyrexia [Recovered/Resolved]
  - Tachycardia [Recovered/Resolved]
  - Rhabdomyolysis [Recovered/Resolved]
  - Intentional overdose [Unknown]
  - Hyperhidrosis [Recovered/Resolved]

NARRATIVE: CASE EVENT DATE: 20120726
